FAERS Safety Report 19654023 (Version 2)
Quarter: 2021Q3

REPORT INFORMATION
  Report Type: Spontaneous
  Country: IS (occurrence: IS)
  Receive Date: 20210804
  Receipt Date: 20210822
  Transmission Date: 20211014
  Serious: Yes (Life-Threatening, Hospitalization, Other)
  Sender: FDA-Public Use
  Company Number: IS-AUROBINDO-AUR-APL-2021-032258

PATIENT
  Age: 58 Year
  Sex: Male

DRUGS (5)
  1. CHLORPROTHIXENE [Suspect]
     Active Substance: CHLORPROTHIXENE
     Indication: BIPOLAR DISORDER
     Dosage: UNK
     Route: 065
  2. ZOPICLONE ACTAVIS [Concomitant]
     Active Substance: ZOPICLONE
     Indication: SLEEP DISORDER
     Dosage: UNK
     Route: 065
  3. PROPRANOLOL [Concomitant]
     Active Substance: PROPRANOLOL HYDROCHLORIDE
     Indication: TREMOR
     Dosage: UNK
     Route: 065
  4. LITHIUM ACETATE [Concomitant]
     Active Substance: LITHIUM ACETATE
     Indication: BIPOLAR I DISORDER
     Dosage: UNK
     Route: 065
  5. OLANZAPINE. [Suspect]
     Active Substance: OLANZAPINE
     Indication: BIPOLAR DISORDER
     Dosage: UNK
     Route: 065

REACTIONS (7)
  - Neuroleptic malignant syndrome [Recovered/Resolved]
  - Toxicity to various agents [Unknown]
  - Dehydration [Unknown]
  - Extrapyramidal disorder [Recovered/Resolved]
  - Urine output increased [Unknown]
  - Acute kidney injury [Unknown]
  - Nephrogenic diabetes insipidus [Unknown]
